FAERS Safety Report 5236191-2 (Version None)
Quarter: 2007Q1

REPORT INFORMATION
  Report Type: 
  Country: None (occurrence: None)
  Receive Date: 20070212
  Receipt Date: 20070205
  Transmission Date: 20070707
  Serious: Yes (Hospitalization)
  Sender: FDA-Public Use
  Company Number: JP-PFIZER INC-2006150762

PATIENT
  Sex: Male
  Weight: 45 kg

DRUGS (8)
  1. HALCION [Suspect]
     Indication: INSOMNIA
     Dosage: DAILY DOSE:.25MG
     Route: 048
     Dates: start: 20060929, end: 20061103
  2. OLMETEC [Suspect]
     Indication: HYPERTENSION
     Dosage: DAILY DOSE:20MG
     Route: 048
     Dates: start: 20060606, end: 20061103
  3. PRAVASTATIN [Suspect]
     Indication: HYPERLIPIDAEMIA
     Dosage: DAILY DOSE:10MG
     Route: 048
     Dates: start: 20060623, end: 20061103
  4. EURODIN [Concomitant]
     Indication: INSOMNIA
     Dosage: DAILY DOSE:1MG
     Route: 048
     Dates: start: 20060929, end: 20061103
  5. OLOPATADINE HYDROCHLORIDE [Concomitant]
     Dosage: DAILY DOSE:5MG
  6. REBAMIPIDE [Concomitant]
  7. NAFTOPIDIL [Concomitant]
     Dosage: DAILY DOSE:50MG
     Route: 048
  8. LACTOBACILLUS BIFIDUS, LYOPHILIZED [Concomitant]
     Route: 048

REACTIONS (1)
  - RHABDOMYOLYSIS [None]
